FAERS Safety Report 8719707 (Version 2)
Quarter: 2014Q4

REPORT INFORMATION
  Report Type: Spontaneous
  Country: FR (occurrence: FR)
  Receive Date: 20120813
  Receipt Date: 20141027
  Transmission Date: 20150529
  Serious: Yes (Hospitalization)
  Sender: FDA-Public Use
  Company Number: PHHY2012FR069206

PATIENT
  Age: 50 Year
  Sex: Male

DRUGS (4)
  1. DALACINE - PER ORAL [Suspect]
     Active Substance: CLINDAMYCIN\CLINDAMYCIN PHOSPHATE
     Indication: PRODUCT USED FOR UNKNOWN INDICATION
     Dosage: UNK UKN, UNK
     Route: 065
     Dates: start: 20120708
  2. VOLTARENE [Suspect]
     Active Substance: DICLOFENAC SODIUM
     Indication: PAIN IN EXTREMITY
  3. AUGMENTIN [Suspect]
     Active Substance: AMOXICILLIN\CLAVULANATE POTASSIUM
     Indication: PRODUCT USED FOR UNKNOWN INDICATION
     Dosage: UNK UKN, UNK
     Route: 065
     Dates: start: 20120704, end: 20120708
  4. VOLTARENE [Suspect]
     Active Substance: DICLOFENAC SODIUM
     Indication: ERYTHEMA
     Dosage: UNK UKN, UNK
     Route: 048
     Dates: start: 20120702, end: 20120704

REACTIONS (5)
  - Erythema [Recovered/Resolved]
  - Pyrexia [Recovered/Resolved]
  - Rash maculo-papular [Recovered/Resolved]
  - Erysipelas [Recovered/Resolved]
  - Toxic skin eruption [Unknown]

NARRATIVE: CASE EVENT DATE: 20120709
